FAERS Safety Report 5563847-4 (Version None)
Quarter: 2007Q4

REPORT INFORMATION
  Report Type: 
  Country: None (occurrence: None)
  Receive Date: 20071217
  Receipt Date: 20070827
  Transmission Date: 20080405
  Serious: No
  Sender: FDA-Public Use
  Company Number: US-ASTRAZENECA-2007UW20462

PATIENT
  Age: 69 Year

DRUGS (1)
  1. CRESTOR [Suspect]

REACTIONS (2)
  - FATIGUE [None]
  - SOMNOLENCE [None]
